FAERS Safety Report 21665411 (Version 2)
Quarter: 2023Q1

REPORT INFORMATION
  Report Type: Report from Study
  Country: US (occurrence: US)
  Receive Date: 20221201
  Receipt Date: 20230101
  Transmission Date: 20230418
  Serious: Yes (Other)
  Sender: FDA-Public Use
  Company Number: US-ABBVIE-4171827

PATIENT
  Age: 48 Year
  Sex: Female

DRUGS (1)
  1. HUMIRA [Suspect]
     Active Substance: ADALIMUMAB
     Indication: Ankylosing spondylitis
     Dosage: CITRATE FREE, FORM STRENGTH 40 MILLIGRAM
     Route: 058

REACTIONS (5)
  - Back pain [Recovering/Resolving]
  - Procedural headache [Recovering/Resolving]
  - Mobility decreased [Unknown]
  - Pain [Not Recovered/Not Resolved]
  - Post lumbar puncture syndrome [Recovering/Resolving]

NARRATIVE: CASE EVENT DATE: 20220901
